FAERS Safety Report 18139908 (Version 1)
Quarter: 2020Q3

REPORT INFORMATION
  Report Type: Spontaneous
  Country: US (occurrence: US)
  Receive Date: 20200812
  Receipt Date: 20200812
  Transmission Date: 20201103
  Serious: Yes (Hospitalization)
  Sender: FDA-Public Use
  Company Number: None

PATIENT
  Age: 49 Year
  Sex: Female

DRUGS (1)
  1. SPRYCEL [Suspect]
     Active Substance: DASATINIB
     Indication: FALL
     Route: 048
     Dates: start: 20200617

REACTIONS (2)
  - Sepsis [None]
  - Pyrexia [None]

NARRATIVE: CASE EVENT DATE: 20200726
